FAERS Safety Report 6945440-1 (Version None)
Quarter: 2010Q3

REPORT INFORMATION
  Report Type: 
  Country: None (occurrence: None)
  Receive Date: 20100827
  Receipt Date: 20100820
  Transmission Date: 20110219
  Serious: Yes (Other)
  Sender: FDA-Public Use
  Company Number: FR-JNJFOC-20100506505

PATIENT
  Age: 65 Year
  Sex: Male
  Weight: 81 kg

DRUGS (11)
  1. REMICADE [Suspect]
     Indication: COLITIS ULCERATIVE
     Route: 042
  2. REMICADE [Suspect]
     Route: 042
  3. REMICADE [Suspect]
     Route: 042
  4. REMICADE [Suspect]
     Route: 042
  5. HUMIRA [Suspect]
     Indication: COLITIS ULCERATIVE
     Route: 058
  6. METHOTREXATE [Suspect]
     Indication: COLITIS ULCERATIVE
     Route: 030
  7. SPECIAFOLDINE [Concomitant]
     Route: 048
  8. HYDROCORTISONE [Concomitant]
     Indication: COLITIS ULCERATIVE
     Route: 048
  9. IDEOS [Concomitant]
     Route: 048
  10. ALL OTHER THERAPEUTIC PRODUCTS [Concomitant]
     Indication: ABDOMINAL PAIN
     Route: 048
  11. PENTASA [Concomitant]

REACTIONS (2)
  - PROSTATE CANCER METASTATIC [None]
  - PROSTATIC SPECIFIC ANTIGEN INCREASED [None]
